FAERS Safety Report 8488037-7 (Version None)
Quarter: 2012Q3

REPORT INFORMATION
  Report Type: 
  Country: None (occurrence: None)
  Receive Date: 20120705
  Receipt Date: 20120625
  Transmission Date: 20120928
  Serious: Yes (Death, Hospitalization, Other)
  Sender: FDA-Public Use
  Company Number: CH-CELGENEUS-151-21880-12053213

PATIENT
  Sex: Male

DRUGS (1)
  1. REVLIMID [Suspect]
     Route: 048

REACTIONS (8)
  - SYNCOPE [None]
  - HAEMORRHAGE [None]
  - NO THERAPEUTIC RESPONSE [None]
  - GOUT [None]
  - TOXICITY TO VARIOUS AGENTS [None]
  - DEATH [None]
  - SPINAL FRACTURE [None]
  - RENAL FAILURE [None]
